FAERS Safety Report 14142325 (Version 2)
Quarter: 2017Q4

REPORT INFORMATION
  Report Type: Spontaneous
  Country: US (occurrence: US)
  Receive Date: 20171030
  Receipt Date: 20171213
  Transmission Date: 20180321
  Serious: Yes (Death, Hospitalization, Other)
  Sender: FDA-Public Use
  Company Number: US-PFIZER INC-2014261642

PATIENT
  Age: 84 Year
  Sex: Female
  Weight: 45.36 kg

DRUGS (3)
  1. CELEBREX [Suspect]
     Active Substance: CELECOXIB
     Indication: ARTHRITIS
     Dosage: 100 MG, 1X/DAY
     Route: 048
  2. CELEBREX [Suspect]
     Active Substance: CELECOXIB
     Indication: RHEUMATOID ARTHRITIS
  3. CELEBREX [Suspect]
     Active Substance: CELECOXIB
     Indication: PAIN
     Dosage: 200 MG, UNK

REACTIONS (5)
  - Multiple organ dysfunction syndrome [Fatal]
  - Respiratory arrest [Fatal]
  - Chest pain [Recovered/Resolved]
  - Cholelithiasis [Unknown]
  - Renal failure [Unknown]

NARRATIVE: CASE EVENT DATE: 201005
